FAERS Safety Report 4842902-8 (Version None)
Quarter: 2005Q4

REPORT INFORMATION
  Report Type: 
  Country: None (occurrence: None)
  Receive Date: 20051129
  Receipt Date: 20051110
  Transmission Date: 20060501
  Serious: Yes (Other)
  Sender: FDA-Public Use
  Company Number: PHFR2005GB03699

PATIENT
  Age: 54 Year
  Sex: Male

DRUGS (2)
  1. DICLOFENAC (DICLOFENAC) [Suspect]
     Dosage: 50 MG TID
     Dates: start: 20051029, end: 20051031
  2. RANITIDINE [Suspect]
     Indication: ANTACID THERAPY
     Dosage: 150 MG BID ORAL
     Route: 048
     Dates: start: 20051029, end: 20051031

REACTIONS (1)
  - APHTHOUS STOMATITIS [None]
